FAERS Safety Report 16907767 (Version 2)
Quarter: 2021Q4

REPORT INFORMATION
  Report Type: Spontaneous
  Country: GB (occurrence: GB)
  Receive Date: 20191011
  Receipt Date: 20211223
  Transmission Date: 20220303
  Serious: Yes (Death, Other)
  Sender: FDA-Public Use
  Company Number: None

PATIENT
  Age: 15 Year
  Sex: Female
  Weight: 53 kg

DRUGS (4)
  1. ISOTRETINOIN [Suspect]
     Active Substance: ISOTRETINOIN
     Indication: Acne
     Dosage: STARTED 20MG INCREASED TO 40 MG DAILY
     Route: 048
     Dates: start: 20181114, end: 201903
  2. ISOTRETINOIN [Suspect]
     Active Substance: ISOTRETINOIN
     Dosage: 40 MILLIGRAM
     Route: 048
     Dates: start: 20190307, end: 20190501
  3. ISOTRETINOIN [Suspect]
     Active Substance: ISOTRETINOIN
     Dosage: STARTED 20MG INCREASED TO 40 MG DAILY
     Route: 048
     Dates: start: 201810, end: 201903
  4. ISOTRETINOIN [Suspect]
     Active Substance: ISOTRETINOIN
     Dosage: 30 MILLIGRAM, QD
     Dates: start: 201812

REACTIONS (5)
  - Completed suicide [Fatal]
  - Major depression [Unknown]
  - Psychotic disorder [Not Recovered/Not Resolved]
  - Depressed mood [Unknown]
  - Drug monitoring procedure incorrectly performed [Unknown]

NARRATIVE: CASE EVENT DATE: 20190501
